FAERS Safety Report 7213064-7 (Version None)
Quarter: 2011Q1

REPORT INFORMATION
  Report Type: 
  Country: None (occurrence: None)
  Receive Date: 20110106
  Receipt Date: 20101230
  Transmission Date: 20110831
  Serious: Yes (Hospitalization)
  Sender: FDA-Public Use
  Company Number: B0692259A

PATIENT
  Sex: Male

DRUGS (1)
  1. AUGMENTIN [Suspect]
     Indication: COUGH
     Dosage: 1G PER DAY
     Route: 048
     Dates: start: 20100916, end: 20100922

REACTIONS (4)
  - OEDEMA PERIPHERAL [None]
  - RASH [None]
  - EYE SWELLING [None]
  - HYPERAEMIA [None]
